FAERS Safety Report 9378196 (Version 2)
Quarter: 2013Q3

REPORT INFORMATION
  Report Type: Spontaneous
  Country: JP (occurrence: JP)
  Receive Date: 20130701
  Receipt Date: 20130705
  Transmission Date: 20140515
  Serious: Yes (Hospitalization)
  Sender: FDA-Public Use
  Company Number: JP-GLAXOSMITHKLINE-B0903996A

PATIENT
  Age: 73 Year
  Sex: Male

DRUGS (14)
  1. VALTREX [Suspect]
     Indication: PRODUCT USED FOR UNKNOWN INDICATION
     Route: 048
     Dates: start: 20130624, end: 20130626
  2. OLMETEC [Concomitant]
     Route: 048
  3. AMLODIN [Concomitant]
     Route: 048
  4. REBAMIPIDE [Concomitant]
     Route: 065
  5. FUROSEMIDE [Concomitant]
     Route: 065
  6. PARIET [Concomitant]
     Route: 048
  7. FOSRENOL [Concomitant]
     Route: 048
  8. VOGLIBOSE [Concomitant]
     Route: 048
  9. RENAGEL [Concomitant]
     Route: 048
  10. PRECIPITATED CALCIUM CARBONATE [Concomitant]
     Route: 048
  11. DOPS [Concomitant]
     Route: 048
  12. AMEZINIUM METILSULFATE [Concomitant]
     Route: 048
  13. LOXONIN [Concomitant]
     Route: 065
  14. MECOBALAMIN [Concomitant]
     Route: 065

REACTIONS (2)
  - Altered state of consciousness [Recovered/Resolved]
  - Dysarthria [Recovered/Resolved]
